FAERS Safety Report 19251025 (Version 1)
Quarter: 2021Q2

REPORT INFORMATION
  Report Type: Other
  Country: US (occurrence: US)
  Receive Date: 20210513
  Receipt Date: 20210513
  Transmission Date: 20210717
  Serious: Yes (Hospitalization)
  Sender: FDA-Public Use
  Company Number: US-ROCHE-2825575

PATIENT
  Sex: Female

DRUGS (1)
  1. CELLCEPT [Suspect]
     Active Substance: MYCOPHENOLATE MOFETIL\MYCOPHENOLATE MOFETIL HYDROCHLORIDE
     Indication: LUPUS NEPHRITIS
     Route: 048

REACTIONS (18)
  - Diarrhoea [Unknown]
  - Pulmonary mass [Unknown]
  - Dehydration [Unknown]
  - Metabolic acidosis [Unknown]
  - Anaemia [Unknown]
  - Renal failure [Unknown]
  - Lung adenocarcinoma [Unknown]
  - Emphysema [Unknown]
  - Pneumonia [Recovered/Resolved]
  - Chronic obstructive pulmonary disease [Recovered/Resolved]
  - Hypokalaemia [Unknown]
  - Weight decreased [Unknown]
  - Acute kidney injury [Recovered/Resolved]
  - Hyponatraemia [Unknown]
  - Malnutrition [Unknown]
  - Hypotension [Unknown]
  - Off label use [Unknown]
  - Thrombocytopenia [Unknown]
